FAERS Safety Report 8069020-2 (Version None)
Quarter: 2011Q4

REPORT INFORMATION
  Report Type: 
  Country: None (occurrence: None)
  Receive Date: 20111221
  Receipt Date: 20101101
  Transmission Date: 20120403
  Serious: Yes (Other)
  Sender: FDA-Public Use
  Company Number: PHHY2010US73246

PATIENT
  Sex: Female

DRUGS (1)
  1. EXJADE [Suspect]
     Indication: APLASTIC ANAEMIA
     Dosage: 125  MG,  ORAL
     Route: 048
     Dates: start: 20070801, end: 20100801

REACTIONS (1)
  - RENAL IMPAIRMENT [None]
